FAERS Safety Report 22192190 (Version 2)
Quarter: 2023Q2

REPORT INFORMATION
  Report Type: Spontaneous
  Country: FR (occurrence: FR)
  Receive Date: 20230410
  Receipt Date: 20230421
  Transmission Date: 20230721
  Serious: Yes (Hospitalization, Other)
  Sender: FDA-Public Use
  Company Number: FR-009507513-2304FRA002096

PATIENT
  Age: 72 Year
  Sex: Female
  Weight: 50.4 kg

DRUGS (22)
  1. KEYTRUDA [Suspect]
     Active Substance: PEMBROLIZUMAB
     Indication: Colorectal cancer
     Dosage: 200 MG EVERY 3 WEEKS, I.E. 2 VIALS OF 100 MG OF SOLUTION PER CYCLE
     Dates: start: 20220819, end: 20230102
  2. KEYTRUDA [Suspect]
     Active Substance: PEMBROLIZUMAB
     Dosage: UNK
  3. KEYTRUDA [Suspect]
     Active Substance: PEMBROLIZUMAB
     Dosage: UNK
  4. KEYTRUDA [Suspect]
     Active Substance: PEMBROLIZUMAB
     Dosage: UNK
  5. KEYTRUDA [Suspect]
     Active Substance: PEMBROLIZUMAB
     Dosage: UNK
  6. KEYTRUDA [Suspect]
     Active Substance: PEMBROLIZUMAB
     Dosage: UNK
  7. KEYTRUDA [Suspect]
     Active Substance: PEMBROLIZUMAB
     Dosage: UNK
  8. KARDEGIC [Concomitant]
     Active Substance: ASPIRIN DL-LYSINE
     Indication: Hypertension
     Dosage: 1 BAG (75 MG) PER OS IN THE MORNING, INITIATED DURING HOSPITALIZATION
     Route: 048
     Dates: start: 20230116, end: 20230125
  9. KARDEGIC [Concomitant]
     Active Substance: ASPIRIN DL-LYSINE
     Dosage: 1 BAG (75 MG) PER OS IN THE MORNING
  10. AMLODIPINE [Concomitant]
     Active Substance: AMLODIPINE BESYLATE
     Indication: Hypertension
     Dosage: 1 CAPSULE (10 MG) IN THE MORNING
     Dates: start: 20230116, end: 20230125
  11. AMLODIPINE [Concomitant]
     Active Substance: AMLODIPINE BESYLATE
     Dosage: 1 CAPSULE (10 MG) IN THE MORNING
  12. IRBESARTAN [Concomitant]
     Active Substance: IRBESARTAN
     Indication: Hypertension
     Dosage: 1 TABLET ( 75 MG) IN THE MORNING
     Route: 048
  13. URAPIDIL [Concomitant]
     Active Substance: URAPIDIL
     Indication: Hypertension
     Dosage: 1 CAPSULE (60 MG) IN THE MORNING AND IN THE EVENING
     Dates: start: 20230116, end: 20230125
  14. URAPIDIL [Concomitant]
     Active Substance: URAPIDIL
     Dosage: 1 CAPSULE (60 MG) IN THE MORNING AND IN THE EVENING
  15. LEVETIRACETAM [Concomitant]
     Active Substance: LEVETIRACETAM
     Indication: Epilepsy
     Dosage: 1 TABLET (500 MG) IN THE MORNING AND IN THE EVENING
     Route: 048
     Dates: start: 20230116, end: 20230125
  16. LEVETIRACETAM [Concomitant]
     Active Substance: LEVETIRACETAM
     Dosage: 1 TABLET (500 MG) IN THE MORNING AND IN THE EVENING
     Route: 048
  17. LEVOTHYROXINE [Concomitant]
     Active Substance: LEVOTHYROXINE
     Indication: Hypothyroidism
     Dosage: 1 TABLET (25 MICROGRAMS) IN THE MORNING
     Route: 048
     Dates: start: 20230116, end: 20230125
  18. LEVOTHYROXINE [Concomitant]
     Active Substance: LEVOTHYROXINE
     Dosage: 1 TABLET (25 MICROGRAMS) IN THE MORNING
     Route: 048
  19. MORPHINE SULFATE [Concomitant]
     Active Substance: MORPHINE SULFATE
     Indication: Pain management
     Dosage: 2 CAPSULES (10 MG) IN THE MORNING AND IN THE EVENING, INITIATED BEFORE THE HOSPITALIZATION
  20. MORPHINE [Concomitant]
     Active Substance: MORPHINE
     Indication: Pain management
     Dosage: SINGLE BOLUS, 1 CAPSULE (5 MG) MAXIMUM 6 CAPSULES PER DAY, INITIATED BEFORE THE HOSPITALIZATION
  21. LACTULOSE [Concomitant]
     Active Substance: LACTULOSE
     Indication: Constipation
     Dosage: 1 BAG (10 G) IN THE MORNING, INITIATED DURING HOSPITALIZATION
     Dates: start: 20230116, end: 20230125
  22. ACETAMINOPHEN [Concomitant]
     Active Substance: ACETAMINOPHEN
     Indication: Pain management
     Dosage: 3 TABLETS (1G) PER DAY AS SINGLE BOLUS, INITIATED DURING HOSPITALIZATION
     Route: 048
     Dates: start: 20230116, end: 20230125

REACTIONS (4)
  - Scleroderma [Unknown]
  - Hyponatraemia [Unknown]
  - Raynaud^s phenomenon [Unknown]
  - Hypertension [Unknown]

NARRATIVE: CASE EVENT DATE: 20221201
